FAERS Safety Report 22641974 (Version 1)
Quarter: 2023Q2

REPORT INFORMATION
  Report Type: Report from Study
  Country: US (occurrence: US)
  Receive Date: 20230626
  Receipt Date: 20230626
  Transmission Date: 20230722
  Serious: Yes (Other)
  Sender: FDA-Public Use
  Company Number: US-ABBVIE-5303348

PATIENT
  Sex: Male

DRUGS (1)
  1. IMBRUVICA [Suspect]
     Active Substance: IBRUTINIB
     Indication: Waldenstrom^s macroglobulinaemia
     Route: 048
     Dates: start: 20200623

REACTIONS (4)
  - Shoulder operation [Recovering/Resolving]
  - Prostatic disorder [Unknown]
  - Investigation abnormal [Not Recovered/Not Resolved]
  - Muscle disorder [Unknown]
